FAERS Safety Report 5396420-1 (Version None)
Quarter: 2007Q3

REPORT INFORMATION
  Report Type: 
  Country: None (occurrence: None)
  Receive Date: 20070725
  Receipt Date: 20070717
  Transmission Date: 20080115
  Serious: Yes (Other)
  Sender: FDA-Public Use
  Company Number: PT-AVENTIS-200716534GDDC

PATIENT
  Age: 52 Year
  Sex: Female

DRUGS (3)
  1. METRONIDAZOLE HCL [Suspect]
     Route: 048
     Dates: start: 20070605, end: 20070612
  2. CIPRALEX [Concomitant]
     Dosage: DOSE: UNK
  3. MEDIPAX                            /00243802/ [Concomitant]
     Dosage: DOSE: UNK

REACTIONS (1)
  - DIARRHOEA [None]
